FAERS Safety Report 5901256-6 (Version None)
Quarter: 2008Q3

REPORT INFORMATION
  Report Type: 
  Country: None (occurrence: None)
  Receive Date: 20080929
  Receipt Date: 20080725
  Transmission Date: 20090109
  Serious: Yes (Life-Threatening, Other)
  Sender: FDA-Public Use
  Company Number: US-BRISTOL-MYERS SQUIBB COMPANY-14265979

PATIENT
  Age: 67 Year
  Sex: Female
  Weight: 54 kg

DRUGS (5)
  1. ORENCIA [Suspect]
     Indication: RHEUMATOID ARTHRITIS
     Dosage: FIRST DOSE ADMINISTERED AT 25ML FOR 15MIN, 50ML FOR 15 MIN AND 100ML TO COMPLETE.
     Route: 042
     Dates: start: 20080708, end: 20080711
  2. ARAVA [Concomitant]
  3. LOTREL [Concomitant]
     Dosage: 1 DOSAGE FORM= 5/10MG.
  4. RESTASIS [Concomitant]
  5. REFRESH TEARS [Concomitant]

REACTIONS (4)
  - DYSPNOEA [None]
  - LIP SWELLING [None]
  - SWELLING FACE [None]
  - SWOLLEN TONGUE [None]
